FAERS Safety Report 10794104 (Version 1)
Quarter: 2015Q1

REPORT INFORMATION
  Report Type: Spontaneous
  Country: US (occurrence: US)
  Receive Date: 20150213
  Receipt Date: 20150213
  Transmission Date: 20150721
  Serious: Yes (Death)
  Sender: FDA-Public Use
  Company Number: US-INCYTE CORPORATION-2014IN003932

PATIENT
  Age: 85 Year
  Sex: Female
  Weight: 76.64 kg

DRUGS (3)
  1. HYDREA [Concomitant]
     Active Substance: HYDROXYUREA
  2. ZOLOFT [Concomitant]
     Active Substance: SERTRALINE HYDROCHLORIDE
  3. JAKAFI [Suspect]
     Active Substance: RUXOLITINIB
     Indication: MYELOFIBROSIS
     Dosage: 10 MG, BID
     Route: 048
     Dates: start: 20130620, end: 20141201

REACTIONS (1)
  - Death [Fatal]

NARRATIVE: CASE EVENT DATE: 20150106
